FAERS Safety Report 11652544 (Version 1)
Quarter: 2015Q4

REPORT INFORMATION
  Report Type: Spontaneous
  Country: US (occurrence: None)
  Receive Date: 20151021
  Receipt Date: 20151021
  Transmission Date: 20160304
  Serious: Yes (Hospitalization)
  Sender: FDA-Public Use
  Company Number: None

PATIENT
  Age: 40 Year
  Sex: Male
  Weight: 90.26 kg

DRUGS (1)
  1. TEMOZOLOMIDE. [Suspect]
     Active Substance: TEMOZOLOMIDE
     Dates: end: 20150920

REACTIONS (8)
  - Chills [None]
  - Headache [None]
  - Photophobia [None]
  - Myalgia [None]
  - Pyrexia [None]
  - Arthralgia [None]
  - Malaise [None]
  - Fatigue [None]

NARRATIVE: CASE EVENT DATE: 20151006
